FAERS Safety Report 25506709 (Version 1)
Quarter: 2025Q3

REPORT INFORMATION
  Report Type: Spontaneous
  Country: EU (occurrence: EU)
  Receive Date: 20250702
  Receipt Date: 20250702
  Transmission Date: 20251021
  Serious: Yes (Hospitalization, Other)
  Sender: PURDUE
  Company Number: EU-NAPPMUNDI-GBR-2025-0126840

PATIENT
  Age: 13 Year
  Sex: Female

DRUGS (3)
  1. OXYCODONE HYDROCHLORIDE [Suspect]
     Active Substance: OXYCODONE HYDROCHLORIDE
     Indication: Product used for unknown indication
     Route: 065
  2. CODEINE PHOSPHATE\SULFOGAIACOL [Suspect]
     Active Substance: CODEINE PHOSPHATE\SULFOGAIACOL
     Indication: Product used for unknown indication
     Route: 065
  3. LYSERGIDE [Suspect]
     Active Substance: LYSERGIDE
     Indication: Product used for unknown indication
     Route: 065

REACTIONS (4)
  - Substance dependence [Unknown]
  - Schizophrenia [Unknown]
  - Antisocial behaviour [Unknown]
  - Personality disorder of childhood [Unknown]
